FAERS Safety Report 23081131 (Version 1)
Quarter: 2023Q4

REPORT INFORMATION
  Report Type: Report from Study
  Country: US (occurrence: US)
  Receive Date: 20231018
  Receipt Date: 20231018
  Transmission Date: 20240109
  Serious: Yes (Hospitalization)
  Sender: FDA-Public Use
  Company Number: US-JAZZ PHARMACEUTICALS-2023-US-021003

PATIENT
  Sex: Female

DRUGS (1)
  1. EPIDIOLEX [Suspect]
     Active Substance: CANNABIDIOL
     Indication: Seizure
     Dosage: GIVE 0.2 ML BY MOUTH TWICE DAILY X 1 WEEK; THEN 0.4 ML TWICE DAILY X 1 WEEK; THEN 0.6 ML TWICE DAILY
     Route: 048
     Dates: start: 202309

REACTIONS (3)
  - Hospitalisation [Not Recovered/Not Resolved]
  - Off label use [Unknown]
  - Off label use [Unknown]
